FAERS Safety Report 19868067 (Version 2)
Quarter: 2021Q4

REPORT INFORMATION
  Report Type: Other
  Country: US (occurrence: US)
  Receive Date: 20210922
  Receipt Date: 20211012
  Transmission Date: 20220303
  Serious: Yes (Hospitalization, Other)
  Sender: FDA-Public Use
  Company Number: US-ROCHE-2813881

PATIENT
  Age: 65 Year
  Sex: Female
  Weight: 61.29 kg

DRUGS (23)
  1. VENCLEXTA [Suspect]
     Active Substance: VENETOCLAX
     Indication: Lymphocytic leukaemia
     Dosage: 100MG TABLET?TAKE 4 TABLETS BY MOUTH DAILY.
     Route: 048
     Dates: start: 202007, end: 2020
  2. VENCLEXTA [Suspect]
     Active Substance: VENETOCLAX
     Indication: B-cell lymphoma
     Dosage: TABLET TAKE 50 MG BY MOUTH DAILY WITH BREAKFAST.
     Route: 048
     Dates: start: 2020, end: 2020
  3. VENCLEXTA [Suspect]
     Active Substance: VENETOCLAX
     Indication: Chronic lymphocytic leukaemia
     Dosage: 10 MG, 50 MG, 100 MG, 20MG  TAB?DISP-42 TABLET, E-PRESCRIBE, TAKE 1 TABLET BY MOUTH DAILY. PER PACKA
     Route: 048
     Dates: start: 2020, end: 2020
  4. VENCLEXTA [Suspect]
     Active Substance: VENETOCLAX
     Dosage: DISP-42 TABLET, E-PRESCRIBE, TAKE 1 TABLET BY MOUTH DAILY. PER PACKAGE INSTRUCTIONS (1 TABLET,1 IN 1
     Route: 048
     Dates: start: 202008, end: 20210816
  5. VENCLEXTA [Suspect]
     Active Substance: VENETOCLAX
     Route: 048
     Dates: start: 202006, end: 20210412
  6. VENCLEXTA [Suspect]
     Active Substance: VENETOCLAX
     Route: 048
     Dates: start: 20210826, end: 202108
  7. VENCLEXTA [Suspect]
     Active Substance: VENETOCLAX
     Route: 048
     Dates: start: 202108, end: 202108
  8. VENCLEXTA [Suspect]
     Active Substance: VENETOCLAX
     Route: 048
     Dates: start: 20210831
  9. GAZYVA [Suspect]
     Active Substance: OBINUTUZUMAB
     Indication: Product used for unknown indication
     Route: 042
  10. ACETAMINOPHEN [Concomitant]
     Active Substance: ACETAMINOPHEN
     Dosage: TAKE 2 TABLETS BY MOUTH EVERY 6 (SIX) HOURS AS NEEDED OTC
     Dates: start: 20200701
  11. ACYCLOVIR [Concomitant]
     Active Substance: ACYCLOVIR
     Dosage: 400 MG TABLET TAKE 1 TABLET BY MOUTH DAILY., DISP-30 TABLET R-1,
     Route: 048
     Dates: start: 20200702
  12. ALLOPURINOL [Concomitant]
     Active Substance: ALLOPURINOL
     Dosage: TAKE 1 TABLET BY MOUTH DAILY WITH BREAKFAST., DISP^3O TABLET,R-1, E-PRESCRIBE,
     Route: 048
     Dates: start: 20200702
  13. POLYETHYLENE GLYCOLS [Concomitant]
     Active Substance: POLYETHYLENE GLYCOLS
     Dosage: 17 GM PACKET?TAKE 17 G BY MOUTH DAILY AS NEEDED., DISP-30 PACKET,R-1, . E-PRESCRIBE
     Route: 048
     Dates: start: 20200701
  14. TRAMADOL [Concomitant]
     Active Substance: TRAMADOL
     Dosage: TAKE 0.5 TABLETS BY EVERY 6 (SIX) HOURS AS NEEDED DISP-30 TABLET R-O, E-PRESCRIBE
     Route: 048
     Dates: start: 20200701
  15. TUMS [Concomitant]
     Active Substance: CALCIUM CARBONATE
     Dosage: TAKE 2 TABLETS BY MOUTH 3 (THREE) TIMES DAILY AS NEEDED., DISP-180 TABLET, R-0, EPRESCRIBE
     Route: 048
     Dates: start: 20200326
  16. MAGNESIUM [Concomitant]
     Active Substance: MAGNESIUM
     Route: 048
  17. VEMLIDY [Concomitant]
     Active Substance: TENOFOVIR ALAFENAMIDE FUMARATE
     Dosage: TAKE 1 TABLET BY MOUTH DAILY. WITH FOOD., DISP-90 TABLET,R-Q, E-PRESCRIBE,
     Route: 048
     Dates: start: 20200528
  18. VISINE DRY EYE RELIEF [Concomitant]
     Active Substance: GLYCERIN\HYPROMELLOSES\POLYETHYLENE GLYCOL 400
     Dosage: 1-0.2-0.2 % EYE DROP?PLACE 1 DROP INTO BOTH EYES DAILY AS NEEDED., DISP-30 ML,
     Dates: start: 20200326
  19. IBRUTINIB [Concomitant]
     Active Substance: IBRUTINIB
  20. TENOFOVIR ALAFENAMIDE [Concomitant]
     Active Substance: TENOFOVIR ALAFENAMIDE
     Dosage: 25 MG TABLETS PO DAILY WITH DINNER
     Route: 048
  21. COMPAZINE [Concomitant]
     Active Substance: PROCHLORPERAZINE MALEATE
     Dosage: 10 MG TABLETS 6 HOURS PO
     Route: 048
  22. REGLAN [Concomitant]
     Active Substance: METOCLOPRAMIDE HYDROCHLORIDE
     Dosage: 10 MG INJECTION IV EVERY 6 HOURS
     Route: 042
  23. SOLU-MEDROL [Concomitant]
     Active Substance: METHYLPREDNISOLONE SODIUM SUCCINATE
     Route: 042

REACTIONS (25)
  - Hepatic enzyme decreased [Unknown]
  - Leukopenia [Unknown]
  - Fatigue [Unknown]
  - Ocular icterus [Unknown]
  - Aspartate aminotransferase increased [Unknown]
  - Alanine aminotransferase increased [Unknown]
  - White blood cell count decreased [Unknown]
  - Ocular icterus [Unknown]
  - Abnormal faeces [Recovered/Resolved]
  - Diarrhoea [Recovered/Resolved]
  - Arthralgia [Unknown]
  - Myalgia [Unknown]
  - Vomiting projectile [Unknown]
  - Pruritus [Unknown]
  - Ill-defined disorder [Unknown]
  - Keloid scar [Unknown]
  - Full blood count abnormal [Recovering/Resolving]
  - Haematocrit decreased [Recovering/Resolving]
  - Platelet count decreased [Recovering/Resolving]
  - Neutrophil count decreased [Recovering/Resolving]
  - Abdominal pain [Recovering/Resolving]
  - Dyspnoea [Recovering/Resolving]
  - Chromaturia [Recovered/Resolved]
  - Weight decreased [Recovering/Resolving]
  - Incorrect dose administered [Unknown]

NARRATIVE: CASE EVENT DATE: 20200601
